FAERS Safety Report 8612643-X (Version None)
Quarter: 2012Q3

REPORT INFORMATION
  Report Type: 
  Country: None (occurrence: None)
  Receive Date: 20120822
  Receipt Date: 20110920
  Transmission Date: 20120928
  Serious: No
  Sender: FDA-Public Use
  Company Number: US-ASTRAZENECA-2011SE56454

PATIENT
  Age: 80 Year
  Sex: Female

DRUGS (1)
  1. SYMBICORT [Suspect]
     Indication: LUNG DISORDER
     Dosage: 160-4.5 MCG, TWO TIMES A DAY 2 PUFFS EACH
     Route: 055

REACTIONS (1)
  - GENERAL PHYSICAL HEALTH DETERIORATION [None]
